FAERS Safety Report 20568735 (Version 1)
Quarter: 2022Q1

REPORT INFORMATION
  Report Type: Spontaneous
  Country: CN (occurrence: CN)
  Receive Date: 20220308
  Receipt Date: 20220308
  Transmission Date: 20220423
  Serious: Yes (Other)
  Sender: FDA-Public Use
  Company Number: CN-PFIZER INC-202200342569

PATIENT
  Age: 75 Year
  Sex: Female
  Weight: 70 kg

DRUGS (6)
  1. CYTARABINE [Suspect]
     Active Substance: CYTARABINE
     Indication: Acute leukaemia
     Dosage: 100 MG, 1 TIME EVERY 3 DAYS
     Route: 041
     Dates: start: 20220131, end: 20220203
  2. DECITABINE [Suspect]
     Active Substance: DECITABINE
     Indication: Acute leukaemia
     Dosage: 25 MG, 1X/DAY
     Route: 041
     Dates: start: 20220126, end: 20220131
  3. ACLARUBICIN HYDROCHLORIDE [Suspect]
     Active Substance: ACLARUBICIN HYDROCHLORIDE
     Indication: Acute leukaemia
     Dosage: 20 MG, ALTERNATE DAY
     Route: 041
     Dates: start: 20220131, end: 20220204
  4. SODIUM CHLORIDE [Concomitant]
     Active Substance: SODIUM CHLORIDE
     Indication: Vehicle solution use
     Dosage: 250 ML, 1X/DAY
     Route: 041
     Dates: start: 20220126, end: 20220131
  5. SODIUM CHLORIDE [Concomitant]
     Active Substance: SODIUM CHLORIDE
     Dosage: 250 ML, ALTERNATE DAY
     Route: 041
     Dates: start: 20220131, end: 20220204
  6. SODIUM CHLORIDE [Concomitant]
     Active Substance: SODIUM CHLORIDE
     Dosage: 192 ML, 1 TIME EVERY 3 DAYS
     Route: 041
     Dates: start: 20220131, end: 20220203

REACTIONS (6)
  - Platelet count decreased [Not Recovered/Not Resolved]
  - Haemoglobin decreased [Unknown]
  - White blood cell count decreased [Unknown]
  - Gingival bleeding [Recovered/Resolved]
  - Asthenia [Unknown]
  - Pyrexia [Unknown]

NARRATIVE: CASE EVENT DATE: 20220201
